FAERS Safety Report 5724199-X (Version None)
Quarter: 2008Q2

REPORT INFORMATION
  Report Type: 
  Country: None (occurrence: None)
  Receive Date: 20080430
  Receipt Date: 20080417
  Transmission Date: 20081010
  Serious: Yes (Hospitalization)
  Sender: FDA-Public Use
  Company Number: US-AMGEN-QUU275009

PATIENT
  Sex: Male

DRUGS (1)
  1. ENBREL [Suspect]
     Indication: PSORIASIS
     Route: 058
     Dates: start: 20071129

REACTIONS (7)
  - EUPHORIC MOOD [None]
  - FOOD CRAVING [None]
  - MUCOUS MEMBRANE DISORDER [None]
  - MULTIPLE SCLEROSIS [None]
  - NIGHT SWEATS [None]
  - TOOTH LOSS [None]
  - WEIGHT DECREASED [None]
